FAERS Safety Report 14412632 (Version 1)
Quarter: 2018Q1

REPORT INFORMATION
  Report Type: Spontaneous
  Country: FR (occurrence: FR)
  Receive Date: 20180119
  Receipt Date: 20180119
  Transmission Date: 20180509
  Serious: Yes (Other)
  Sender: FDA-Public Use
  Company Number: FR-ELI_LILLY_AND_COMPANY-FR201709011071

PATIENT
  Sex: Male
  Weight: 120 kg

DRUGS (6)
  1. ALIMTA [Suspect]
     Active Substance: PEMETREXED DISODIUM
     Indication: BRONCHIAL CARCINOMA
     Dosage: 500 MG/M2, CYCLICAL (CYCLES OF 3 WEEKS INJECTION AT D1)
     Route: 065
     Dates: start: 201705, end: 201710
  2. CISPLATINE [Concomitant]
     Active Substance: CISPLATIN
     Indication: BRONCHIAL CARCINOMA
  3. FOLIC ACID. [Concomitant]
     Active Substance: FOLIC ACID
  4. VITAMIN B12 [Concomitant]
     Active Substance: CYANOCOBALAMIN
     Dosage: UNK UNK, OTHER (EVERY 9 WEEKS)
  5. AVASTIN [Concomitant]
     Active Substance: BEVACIZUMAB
     Indication: BRONCHIAL CARCINOMA
     Dosage: UNK
  6. DEXAMETHASONE. [Concomitant]
     Active Substance: DEXAMETHASONE
     Dosage: 4 MG, BID

REACTIONS (6)
  - Hypersomnia [Unknown]
  - Asthenia [Recovering/Resolving]
  - Off label use [Unknown]
  - Fatigue [Unknown]
  - Decreased appetite [Unknown]
  - Somnolence [Recovering/Resolving]
